FAERS Safety Report 11796209 (Version 1)
Quarter: 2015Q4

REPORT INFORMATION
  Report Type: Report from Study
  Country: US (occurrence: US)
  Receive Date: 20151203
  Receipt Date: 20151203
  Transmission Date: 20160305
  Serious: Yes (Hospitalization, Other)
  Sender: FDA-Public Use
  Company Number: US-ROCHE-1103249

PATIENT
  Age: 40 Year
  Sex: Female
  Weight: 53.45 kg

DRUGS (3)
  1. BEVACIZUMAB [Suspect]
     Active Substance: BEVACIZUMAB
     Indication: PANCREATIC NEUROENDOCRINE TUMOUR METASTATIC
     Dosage: OVER 30 TO 90MIN ON DAYS 1 AND 15 (28 DAYS CYCLE).?LAST ADMINISTERED DATE PRIOR TO SAE: 05/JUN/2012
     Route: 042
     Dates: start: 20111025
  2. EVEROLIMUS [Suspect]
     Active Substance: EVEROLIMUS
     Indication: PANCREATIC NEUROENDOCRINE TUMOUR METASTATIC
     Dosage: LAST ADMINISTERED DATE: 29/JUN/2012
     Route: 048
     Dates: start: 20111025
  3. OCTREOTIDE ACETATE. [Suspect]
     Active Substance: OCTREOTIDE ACETATE
     Indication: PANCREATIC NEUROENDOCRINE TUMOUR METASTATIC
     Dosage: ON DAY 1 OF 28 DAYS CYCLE?LAST ADMINISTERED DATE: 22/MAY/2012
     Route: 030
     Dates: start: 20111025

REACTIONS (3)
  - Pleural effusion [Recovered/Resolved]
  - Hypertension [Recovered/Resolved with Sequelae]
  - Pericardial effusion [Recovered/Resolved]

NARRATIVE: CASE EVENT DATE: 20120624
